FAERS Safety Report 25262959 (Version 1)
Quarter: 2025Q2

REPORT INFORMATION
  Report Type: Spontaneous
  Country: US (occurrence: US)
  Receive Date: 20250502
  Receipt Date: 20250502
  Transmission Date: 20250717
  Serious: Yes (Other)
  Sender: UNILEVER
  Company Number: US-Unilever-2176043

PATIENT
  Age: 60 Year
  Sex: Female

DRUGS (1)
  1. ST. IVES FACE SCRUB APRICOT BLEMISH CONTROL [Suspect]
     Active Substance: SALICYLIC ACID
     Dates: start: 20250408

REACTIONS (7)
  - Eye irritation [Not Recovered/Not Resolved]
  - Blister [Not Recovered/Not Resolved]
  - Erythema [Not Recovered/Not Resolved]
  - Infection [Not Recovered/Not Resolved]
  - Application site erythema [Not Recovered/Not Resolved]
  - Rash [Not Recovered/Not Resolved]
  - Eye swelling [Not Recovered/Not Resolved]

NARRATIVE: CASE EVENT DATE: 20250408
